FAERS Safety Report 16243240 (Version 1)
Quarter: 2019Q2

REPORT INFORMATION
  Report Type: Spontaneous
  Country: US (occurrence: US)
  Receive Date: 20190425
  Receipt Date: 20190425
  Transmission Date: 20190711
  Serious: Yes (Disabling)
  Sender: FDA-Public Use
  Company Number: None

PATIENT
  Age: 78 Year
  Sex: Female
  Weight: 58.5 kg

DRUGS (6)
  1. L METHYLFOLATE [Concomitant]
  2. SALONPAS PAIN RELIEVING JET [Suspect]
     Active Substance: MENTHOL\METHYL SALICYLATE
     Indication: PAIN
     Route: 061
  3. LEVOTHYROXINE. [Concomitant]
     Active Substance: LEVOTHYROXINE
  4. BUSPAR [Concomitant]
     Active Substance: BUSPIRONE HYDROCHLORIDE
  5. SALONPAS PAIN RELIEVING JET [Suspect]
     Active Substance: MENTHOL\METHYL SALICYLATE
     Indication: PRURITUS
     Route: 061
  6. VENLAFAXINE [Concomitant]
     Active Substance: VENLAFAXINE HYDROCHLORIDE

REACTIONS (2)
  - Micturition urgency [None]
  - Urinary incontinence [None]

NARRATIVE: CASE EVENT DATE: 20190312
